FAERS Safety Report 7432679-4 (Version None)
Quarter: 2011Q2

REPORT INFORMATION
  Report Type: 
  Country: None (occurrence: None)
  Receive Date: 20110422
  Receipt Date: 20110414
  Transmission Date: 20111010
  Serious: Yes (Hospitalization, Disabling)
  Sender: FDA-Public Use
  Company Number: TN-ROCHE-769096

PATIENT
  Sex: Female
  Weight: 39 kg

DRUGS (2)
  1. TOCILIZUMAB [Suspect]
     Indication: RHEUMATOID ARTHRITIS
     Dosage: DATE OF LAST DOSE PRIOR TO SAE: 28-MAR-2011.
     Route: 042
     Dates: start: 20110328
  2. PREDNISONE [Concomitant]
     Dates: start: 20100101

REACTIONS (1)
  - CONFUSIONAL STATE [None]
